FAERS Safety Report 7311574-5 (Version None)
Quarter: 2011Q1

REPORT INFORMATION
  Report Type: 
  Country: None (occurrence: None)
  Receive Date: 20110224
  Receipt Date: 20110216
  Transmission Date: 20110831
  Serious: Yes (Death, Other)
  Sender: FDA-Public Use
  Company Number: JP-ROXANE LABORATORIES, INC.-2011-RO-00191RO

PATIENT
  Age: 67 Year
  Sex: Male
  Weight: 60 kg

DRUGS (9)
  1. PREDNISONE [Suspect]
     Indication: MULTIPLE MYELOMA
  2. DOXORUBICIN [Suspect]
     Indication: MULTIPLE MYELOMA
  3. DEXAMETHASONE [Suspect]
     Indication: MULTIPLE MYELOMA
  4. VINCRISTINE [Suspect]
     Indication: MULTIPLE MYELOMA
  5. BORTEZOMIB [Suspect]
  6. CARBOPLATIN [Suspect]
     Indication: MULTIPLE MYELOMA
  7. MELPHALAN [Suspect]
     Indication: MULTIPLE MYELOMA
  8. PACLITAXEL [Suspect]
     Indication: MULTIPLE MYELOMA
  9. DEXAMETHASONE [Suspect]
     Dosage: 20 MG

REACTIONS (7)
  - MULTIPLE MYELOMA [None]
  - ZYGOMYCOSIS [None]
  - RENAL FAILURE [None]
  - TUMOUR LYSIS SYNDROME [None]
  - AMMONIA INCREASED [None]
  - TYPE 2 DIABETES MELLITUS [None]
  - HAEMOCHROMATOSIS [None]
